FAERS Safety Report 12392281 (Version 1)
Quarter: 2016Q2

REPORT INFORMATION
  Report Type: Spontaneous
  Country: US (occurrence: None)
  Receive Date: 20160520
  Receipt Date: 20160520
  Transmission Date: 20160815
  Serious: Yes (Death, Hospitalization)
  Sender: FDA-Public Use
  Company Number: None

PATIENT
  Age: 59 Year
  Sex: Male
  Weight: 79.1 kg

DRUGS (13)
  1. LASIX [Concomitant]
     Active Substance: FUROSEMIDE
  2. DACLATASVIR 60MG [Suspect]
     Active Substance: DACLATASVIR
     Indication: HEPATITIS C
     Route: 048
     Dates: start: 20151016, end: 20160324
  3. ZOLOFT [Concomitant]
     Active Substance: SERTRALINE HYDROCHLORIDE
  4. ZINC [Concomitant]
     Active Substance: ZINC\ZINC CHLORIDE
  5. SOFOSBUVIR 400MG [Suspect]
     Active Substance: SOFOSBUVIR
     Indication: HEPATITIS C
     Route: 048
     Dates: start: 20151016, end: 20160324
  6. VITAMIN D [Concomitant]
     Active Substance: CHOLECALCIFEROL
  7. POTASSIUM CHLORIDE. [Concomitant]
     Active Substance: POTASSIUM CHLORIDE
  8. CIPRO [Concomitant]
     Active Substance: CIPROFLOXACIN HYDROCHLORIDE
  9. LACTULOSE. [Concomitant]
     Active Substance: LACTULOSE
  10. TYLENOL [Concomitant]
     Active Substance: ACETAMINOPHEN
  11. PRILOSEC [Concomitant]
     Active Substance: OMEPRAZOLE MAGNESIUM
  12. ALDACTONE [Concomitant]
     Active Substance: SPIRONOLACTONE
  13. XIFAXAN [Concomitant]
     Active Substance: RIFAXIMIN

REACTIONS (7)
  - Injury [None]
  - Fall [None]
  - Subarachnoid haemorrhage [None]
  - Brain contusion [None]
  - Subdural haematoma [None]
  - Cerebrovascular accident [None]
  - Head injury [None]

NARRATIVE: CASE EVENT DATE: 20160317
